FAERS Safety Report 5914984-3 (Version None)
Quarter: 2008Q4

REPORT INFORMATION
  Report Type: 
  Country: None (occurrence: None)
  Receive Date: 20081010
  Receipt Date: 20081003
  Transmission Date: 20090506
  Serious: Yes (Other)
  Sender: FDA-Public Use
  Company Number: CA-BAYER-200813944BCC

PATIENT
  Age: 81 Year
  Sex: Male

DRUGS (4)
  1. ASPIRIN [Suspect]
     Indication: CEREBROVASCULAR ACCIDENT PROPHYLAXIS
     Route: 048
  2. MICARDIS [Concomitant]
     Dosage: TOTAL DAILY DOSE: 80  MG  UNIT DOSE: 80 MG
  3. CRESTOR [Concomitant]
     Dosage: TOTAL DAILY DOSE: 5 MG  UNIT DOSE: 5 MG
  4. ACETAZOLAMIDE [Concomitant]

REACTIONS (3)
  - DEHYDRATION [None]
  - HYPOTENSION [None]
  - POLYURIA [None]
